FAERS Safety Report 15606488 (Version 2)
Quarter: 2019Q2

REPORT INFORMATION
  Report Type: Report from Study
  Country: CA (occurrence: CA)
  Receive Date: 20181112
  Receipt Date: 20190528
  Transmission Date: 20190711
  Serious: Yes (Other)
  Sender: FDA-Public Use
  Company Number: CA-ROCHE-1957033

PATIENT
  Sex: Female
  Weight: 133.8 kg

DRUGS (4)
  1. RITUXAN [Suspect]
     Active Substance: RITUXIMAB
     Indication: RHEUMATOID ARTHRITIS
     Dosage: RECENT RITUXAN DOSE WAS RECEIVED ON 17/NOV/2016
     Route: 042
     Dates: start: 20161103
  2. INDOMETHACIN [INDOMETACIN] [Concomitant]
     Active Substance: INDOMETHACIN
  3. SULFASALAZINE. [Concomitant]
     Active Substance: SULFASALAZINE
  4. LEFLUNOMIDE. [Concomitant]
     Active Substance: LEFLUNOMIDE

REACTIONS (5)
  - Depression [Unknown]
  - Stress [Unknown]
  - Weight increased [Recovered/Resolved]
  - Neuralgia [Unknown]
  - Anxiety disorder [Unknown]
